FAERS Safety Report 14383507 (Version 2)
Quarter: 2018Q1

REPORT INFORMATION
  Report Type: Spontaneous
  Country: US (occurrence: US)
  Receive Date: 20180115
  Receipt Date: 20180131
  Transmission Date: 20180509
  Serious: Yes (Hospitalization, Other)
  Sender: FDA-Public Use
  Company Number: US-AMGEN-USASP2018003995

PATIENT
  Age: 59 Year
  Sex: Male
  Weight: 83.45 kg

DRUGS (15)
  1. ONDANSETRON HYDROCHLORIDE. [Concomitant]
     Active Substance: ONDANSETRON HYDROCHLORIDE
     Dosage: 4 MG, Q6H
     Route: 042
  2. WARFARIN SODIUM. [Concomitant]
     Active Substance: WARFARIN SODIUM
     Dosage: 5 MG, QD
     Route: 048
  3. ASPIRIN. [Concomitant]
     Active Substance: ASPIRIN
     Dosage: 81 MG, QOD
  4. COENZYME Q10 [Concomitant]
     Active Substance: UBIDECARENONE
     Dosage: 200 MG, UNK
  5. VITAMIN D [Concomitant]
     Active Substance: CHOLECALCIFEROL
     Dosage: 3000 UNIT, QD
     Route: 048
  6. REPATHA [Suspect]
     Active Substance: EVOLOCUMAB
     Indication: DYSLIPIDAEMIA
  7. HYDROMORPHONE HCL [Concomitant]
     Active Substance: HYDROMORPHONE HYDROCHLORIDE
     Dosage: 1 MG, Q4H
     Route: 042
     Dates: start: 20180101
  8. PHENYTOIN SODIUM. [Concomitant]
     Active Substance: PHENYTOIN SODIUM
     Dosage: 300 MG, QD
     Route: 048
     Dates: start: 20180101
  9. REPATHA [Suspect]
     Active Substance: EVOLOCUMAB
     Indication: TYPE V HYPERLIPIDAEMIA
     Dosage: UNK
     Route: 065
     Dates: start: 20171229
  10. LORAZEPAM. [Concomitant]
     Active Substance: LORAZEPAM
     Dosage: 0.5 MG, Q6H
     Route: 042
     Dates: start: 20180101
  11. SODIUM CHLORIDE. [Concomitant]
     Active Substance: SODIUM CHLORIDE
     Dosage: 1000 ML, Q12H
     Route: 042
     Dates: start: 20180101, end: 20180101
  12. METFORMIN [Concomitant]
     Active Substance: METFORMIN HYDROCHLORIDE
     Dosage: 500 MG, BID
     Route: 048
  13. LEVOTHYROXINE SODIUM. [Concomitant]
     Active Substance: LEVOTHYROXINE SODIUM
     Dosage: 175 MUG, QD
     Route: 048
     Dates: start: 20180101
  14. FAMOTIDINE. [Concomitant]
     Active Substance: FAMOTIDINE
     Dosage: 20 MG, Q12H
     Route: 042
     Dates: start: 20180101
  15. CRESTOR [Concomitant]
     Active Substance: ROSUVASTATIN CALCIUM
     Dosage: 40 MG, QD
     Route: 048

REACTIONS (31)
  - Urinary tract infection [Unknown]
  - Bladder obstruction [Unknown]
  - Gastrooesophageal reflux disease [Unknown]
  - Application site erythema [Unknown]
  - Appendicitis [Unknown]
  - Constipation [Unknown]
  - Oesophagitis [Unknown]
  - Hernia [Unknown]
  - Vomiting [Unknown]
  - Calculus urinary [Unknown]
  - Nausea [Unknown]
  - Post procedural hypothyroidism [Unknown]
  - Diverticulum [Unknown]
  - Abdominal pain [Unknown]
  - Pancreatitis [Recovered/Resolved]
  - Urinary tract obstruction [Unknown]
  - Urinary retention [Unknown]
  - Intestinal obstruction [Unknown]
  - Cholangitis [Unknown]
  - Dyspepsia [Unknown]
  - Gastritis [Unknown]
  - Myocardial infarction [Unknown]
  - Acute coronary syndrome [Unknown]
  - Peptic ulcer [Unknown]
  - Inflammatory bowel disease [Unknown]
  - Cholecystitis [Unknown]
  - Cholelithiasis [Unknown]
  - Infectious mononucleosis [Unknown]
  - Lymphadenitis [Unknown]
  - Hepatitis [Unknown]
  - Pyelonephritis [Unknown]

NARRATIVE: CASE EVENT DATE: 20171231
